FAERS Safety Report 4785155-1 (Version None)
Quarter: 2005Q3

REPORT INFORMATION
  Report Type: 
  Country: None (occurrence: None)
  Receive Date: 20050928
  Receipt Date: 20050907
  Transmission Date: 20060218
  Serious: Yes (Other)
  Sender: FDA-Public Use
  Company Number: EWC050945750

PATIENT
  Age: 69 Year
  Sex: Female

DRUGS (17)
  1. HUMULIN N [Suspect]
     Indication: DIABETES MELLITUS
     Dosage: 20 IU/1 DAY
  2. HUMULIN R [Suspect]
     Indication: DIABETES MELLITUS
     Dosage: 40 IU DAY
  3. HUMULIN 70/30 [Suspect]
     Indication: DIABETES MELLITUS
     Dosage: 30 IU/1 DAY
  4. EVISTA [Suspect]
     Indication: OSTEOPOROSIS
     Dosage: 1 DSG FORM DAY
  5. CYNT (MOXONIDINE) [Concomitant]
  6. BETASERC (BETAHISTINE HYDROCHLORIDE) [Concomitant]
  7. LEVOTHYROXINE SODIUM [Concomitant]
  8. ADEXOR(TRIMETAZIDINE HYDROCHLORIDE) [Concomitant]
  9. ATENOLOL [Concomitant]
  10. ASTRIX (ACETYLSALICYLIC ACID) [Concomitant]
  11. ENALAPRIL MALEATE [Concomitant]
  12. ATORVASTATIN CALCIUM [Concomitant]
  13. DOXIUM (CALCIUM DOBESILATE) [Concomitant]
  14. FERRO-FOLGAMMA [Concomitant]
  15. MERCKFORMIN(METFORMIN HYDROCHLORIDE) [Concomitant]
  16. NITROMINT (GLYCERYL TRINITRATE) [Concomitant]
  17. MIDAZOLAM HYDROCHLORIDE [Concomitant]

REACTIONS (4)
  - ANAESTHESIA [None]
  - ASTHENIA [None]
  - CARPAL TUNNEL SYNDROME [None]
  - HYPOAESTHESIA [None]
